FAERS Safety Report 5323187-5 (Version None)
Quarter: 2007Q2

REPORT INFORMATION
  Report Type: 
  Country: None (occurrence: None)
  Receive Date: 20070220
  Receipt Date: 20061115
  Transmission Date: 20071010
  Serious: No
  Sender: FDA-Public Use
  Company Number: WAES 0611USA04856

PATIENT
  Sex: Female

DRUGS (2)
  1. JANUVIA [Suspect]
     Dosage: PO
     Route: 048
     Dates: start: 20061101, end: 20061113
  2. AMARYL [Concomitant]

REACTIONS (2)
  - ARTHRALGIA [None]
  - NASOPHARYNGITIS [None]
